FAERS Safety Report 4909048-1 (Version None)
Quarter: 2006Q1

REPORT INFORMATION
  Report Type: 
  Country: None (occurrence: None)
  Receive Date: 20060210
  Receipt Date: 20060210
  Transmission Date: 20060701
  Serious: Yes (Hospitalization)
  Sender: FDA-Public Use
  Company Number: None

PATIENT
  Age: 74 Year
  Sex: Male
  Weight: 89.6 kg

DRUGS (2)
  1. FELODIPINE [Suspect]
     Indication: HYPERTENSION
  2. HYDRALAZINE [Suspect]
     Indication: HYPERTENSION

REACTIONS (1)
  - SYNCOPE [None]
